FAERS Safety Report 23501148 (Version 1)
Quarter: 2024Q1

REPORT INFORMATION
  Report Type: Spontaneous
  Country: US (occurrence: US)
  Receive Date: 20240208
  Receipt Date: 20240208
  Transmission Date: 20240410
  Serious: No
  Sender: FDA-Public Use
  Company Number: US-PERRIGO-23US001502

PATIENT
  Age: 65 Year
  Sex: Female

DRUGS (7)
  1. CETIRIZINE HYDROCHLORIDE [Suspect]
     Active Substance: CETIRIZINE HYDROCHLORIDE
     Indication: Seasonal allergy
     Dosage: 10 MG, QD
     Route: 048
     Dates: start: 2021
  2. CETIRIZINE HYDROCHLORIDE [Suspect]
     Active Substance: CETIRIZINE HYDROCHLORIDE
     Indication: Allergy to animal
     Dosage: 20 MG, SINGLE
     Route: 048
     Dates: start: 20230127, end: 20230127
  3. POTASSIUM CHLORIDE [Concomitant]
     Active Substance: POTASSIUM CHLORIDE
     Indication: Blood potassium decreased
     Dosage: 20 MEQ, BID
     Route: 065
     Dates: start: 202201
  4. ESTRADIOL [Concomitant]
     Active Substance: ESTRADIOL
     Indication: Oestrogen replacement therapy
     Dosage: 0.5 MG
     Route: 065
     Dates: start: 2018
  5. ROSUVASTATIN [Concomitant]
     Active Substance: ROSUVASTATIN
     Indication: Blood cholesterol increased
     Dosage: 10 MG
     Route: 065
     Dates: start: 202207
  6. EZETIMIB +PHARMA [Concomitant]
     Indication: Blood cholesterol increased
     Dosage: 10 MG
     Route: 065
     Dates: start: 202207
  7. VITAMIN D3 [Concomitant]
     Active Substance: CHOLECALCIFEROL
     Indication: Supplementation therapy
     Dosage: 5,000IU
     Route: 065

REACTIONS (2)
  - Extra dose administered [Unknown]
  - Product administered to patient of inappropriate age [Unknown]

NARRATIVE: CASE EVENT DATE: 20210101
